FAERS Safety Report 19640963 (Version 3)
Quarter: 2021Q3

REPORT INFORMATION
  Report Type: Spontaneous
  Country: NL (occurrence: NL)
  Receive Date: 20210730
  Receipt Date: 20210823
  Transmission Date: 20211014
  Serious: Yes (Life-Threatening, Other)
  Sender: FDA-Public Use
  Company Number: NL-SA-2021SA248237

PATIENT
  Age: 86 Year
  Sex: Female
  Weight: 80 kg

DRUGS (3)
  1. SOTALOL. [Concomitant]
     Active Substance: SOTALOL
     Dosage: 2DD
     Route: 065
  2. LANTUS [Suspect]
     Active Substance: INSULIN GLARGINE
     Dosage: 44EH
     Route: 058
     Dates: start: 20050301
  3. FRUSEMID [FUROSEMIDE] [Concomitant]
     Indication: CARDIAC FAILURE
     Dosage: 2DD
     Route: 065

REACTIONS (9)
  - Renal impairment [Unknown]
  - Blood glucose increased [Unknown]
  - Diabetic coma [Unknown]
  - Vomiting [Unknown]
  - Blood glucose decreased [Unknown]
  - Cognitive disorder [Unknown]
  - Cardiac asthma [Unknown]
  - Food intolerance [Unknown]
  - Weight decreased [Unknown]

NARRATIVE: CASE EVENT DATE: 20210723
